FAERS Safety Report 14964934 (Version 1)
Quarter: 2018Q2

REPORT INFORMATION
  Report Type: Spontaneous
  Country: US (occurrence: US)
  Receive Date: 20180601
  Receipt Date: 20180601
  Transmission Date: 20180711
  Serious: Yes (Hospitalization)
  Sender: FDA-Public Use
  Company Number: US-MYLANLABS-2018M1036496

PATIENT
  Age: 5 Year
  Sex: Male

DRUGS (5)
  1. IPRATROPIUM [Suspect]
     Active Substance: IPRATROPIUM
     Indication: PNEUMONIA
     Route: 045
  2. IPRATROPIUM [Suspect]
     Active Substance: IPRATROPIUM
     Indication: PNEUMONIA
     Dosage: NEBULIZERS
     Route: 055
  3. ALBUTEROL                          /00139501/ [Concomitant]
     Active Substance: ALBUTEROL
     Indication: PNEUMONIA
     Dosage: NEBULIZERS
     Route: 055
  4. PREDNISONE. [Concomitant]
     Active Substance: PREDNISONE
     Indication: PNEUMONIA
     Route: 048
  5. AMOXICILLIN. [Concomitant]
     Active Substance: AMOXICILLIN
     Indication: PNEUMONIA
     Route: 065

REACTIONS (1)
  - Pupils unequal [Recovered/Resolved]
